FAERS Safety Report 12842967 (Version 2)
Quarter: 2016Q4

REPORT INFORMATION
  Report Type: Spontaneous
  Country: US (occurrence: US)
  Receive Date: 20161013
  Receipt Date: 20161128
  Transmission Date: 20170207
  Serious: No
  Sender: FDA-Public Use
  Company Number: US-PFIZER INC-2016476696

PATIENT
  Sex: Male

DRUGS (2)
  1. XELJANZ XR [Suspect]
     Active Substance: TOFACITINIB CITRATE
     Dosage: UNK
  2. XELJANZ [Suspect]
     Active Substance: TOFACITINIB CITRATE
     Dosage: UNK

REACTIONS (15)
  - C-reactive protein increased [Unknown]
  - Hyperglycaemia [Unknown]
  - Photosensitivity reaction [Unknown]
  - Pain in extremity [Unknown]
  - Fatigue [Unknown]
  - Myalgia [Unknown]
  - Muscle spasms [Unknown]
  - Dry mouth [Unknown]
  - Musculoskeletal stiffness [Unknown]
  - Constipation [Unknown]
  - Rash [Unknown]
  - Oedema [Unknown]
  - Muscular weakness [Unknown]
  - Joint swelling [Unknown]
  - Arthralgia [Unknown]
